FAERS Safety Report 7070142-3 (Version None)
Quarter: 2010Q4

REPORT INFORMATION
  Report Type: 
  Country: None (occurrence: None)
  Receive Date: 20101028
  Receipt Date: 20100910
  Transmission Date: 20110411
  Serious: No
  Sender: FDA-Public Use
  Company Number: US-WYE-H17491010

PATIENT
  Sex: Female
  Weight: 81.72 kg

DRUGS (5)
  1. PROTONIX [Suspect]
     Indication: GASTROOESOPHAGEAL REFLUX DISEASE
     Dates: start: 20080101
  2. ASPIRIN [Concomitant]
  3. LISINOPRIL [Concomitant]
  4. PLAVIX [Concomitant]
  5. METFORMIN [Concomitant]

REACTIONS (2)
  - DRUG EFFECT DECREASED [None]
  - DYSPEPSIA [None]
